FAERS Safety Report 14298566 (Version 1)
Quarter: 2017Q4

REPORT INFORMATION
  Report Type: Spontaneous
  Country: US (occurrence: US)
  Receive Date: 20171218
  Receipt Date: 20171218
  Transmission Date: 20180321
  Serious: Yes (Hospitalization, Other)
  Sender: FDA-Public Use
  Company Number: US-TESARO, INC-US-2017TSO04417

PATIENT

DRUGS (4)
  1. MAGNESIUM [Concomitant]
     Active Substance: MAGNESIUM
     Indication: BLOOD MAGNESIUM DECREASED
  2. ZEJULA [Suspect]
     Active Substance: NIRAPARIB
     Dosage: 100 MG, QD
     Route: 048
     Dates: start: 201711
  3. ZEJULA [Suspect]
     Active Substance: NIRAPARIB
     Indication: OVARIAN CANCER METASTATIC
     Dosage: 300 MG, QD IN THE EVENINGS
     Route: 048
     Dates: start: 201708
  4. ZEJULA [Suspect]
     Active Substance: NIRAPARIB
     Dosage: 200 MG, QD
     Route: 048

REACTIONS (15)
  - Heart rate increased [Recovered/Resolved]
  - Nausea [Not Recovered/Not Resolved]
  - Headache [Not Recovered/Not Resolved]
  - Tachyphrenia [Recovered/Resolved]
  - White blood cell count abnormal [Recovered/Resolved]
  - Blood magnesium decreased [Not Recovered/Not Resolved]
  - Wheelchair user [Unknown]
  - Insomnia [Recovered/Resolved]
  - Asthenia [Recovered/Resolved]
  - Hyperthyroidism [Recovering/Resolving]
  - Walking disability [Unknown]
  - Platelet count abnormal [Recovered/Resolved]
  - Ill-defined disorder [Unknown]
  - Retching [Unknown]
  - Dizziness [Recovered/Resolved]

NARRATIVE: CASE EVENT DATE: 20171010
